FAERS Safety Report 7752594-6 (Version None)
Quarter: 2011Q3

REPORT INFORMATION
  Report Type: 
  Country: None (occurrence: None)
  Receive Date: 20110913
  Receipt Date: 20110906
  Transmission Date: 20111222
  Serious: Yes (Other)
  Sender: FDA-Public Use
  Company Number: FK201101848

PATIENT
  Age: 55 Year
  Sex: Male

DRUGS (1)
  1. FUROSEMIDE (MANUFACTURER UNKNOWN) (FUROSEMIDE) (FUROSEMIDE) [Suspect]
     Indication: PRODUCT USED FOR UNKNOWN INDICATION
     Dosage: 10 MG PER HOUR, INTRAVENOUS, 20 MG, PER HOUR, INTRAVENOUS
     Route: 042

REACTIONS (2)
  - PURPURA [None]
  - LEUKOCYTOCLASTIC VASCULITIS [None]
